FAERS Safety Report 9100168 (Version 1)
Quarter: 2013Q1

REPORT INFORMATION
  Report Type: Spontaneous
  Country: US (occurrence: US)
  Receive Date: 20130215
  Receipt Date: 20130215
  Transmission Date: 20140127
  Serious: Yes (Hospitalization, Other)
  Sender: FDA-Public Use
  Company Number: US-ABBOTT-13P-163-1048867-00

PATIENT
  Sex: Male
  Weight: 93.07 kg

DRUGS (11)
  1. HUMIRA [Suspect]
     Indication: COLITIS ULCERATIVE
     Dates: start: 201004
  2. ALBUTEROL [Concomitant]
     Indication: CHRONIC OBSTRUCTIVE PULMONARY DISEASE
  3. BARACLUDE [Concomitant]
     Indication: HEPATITIS B
  4. CANASA [Concomitant]
     Indication: INFLAMMATION
  5. ENALAPRIL [Concomitant]
     Indication: HYPERTENSION
  6. LYRICA [Concomitant]
     Indication: PAIN
  7. OMEPRAZOLE [Concomitant]
     Indication: GASTROOESOPHAGEAL REFLUX DISEASE
  8. HYDROCODONE/ACETAMINOPHEN [Concomitant]
     Indication: PAIN
  9. PROAIR [Concomitant]
     Indication: CHRONIC OBSTRUCTIVE PULMONARY DISEASE
  10. SINGULAIR [Concomitant]
     Indication: HYPERSENSITIVITY
  11. TERAZOSIN [Concomitant]
     Indication: HYPERTENSION

REACTIONS (4)
  - Fall [Recovered/Resolved]
  - Humerus fracture [Recovered/Resolved]
  - Femur fracture [Not Recovered/Not Resolved]
  - Impaired healing [Not Recovered/Not Resolved]
